FAERS Safety Report 12390300 (Version 2)
Quarter: 2016Q2

REPORT INFORMATION
  Report Type: Spontaneous
  Country: NL (occurrence: NL)
  Receive Date: 20160520
  Receipt Date: 20160523
  Transmission Date: 20160815
  Serious: Yes (Congenital Anomaly, Other)
  Sender: FDA-Public Use
  Company Number: NL-PFIZER INC-2016263415

PATIENT
  Sex: Male

DRUGS (3)
  1. FLUOXETINE HYDROCHLORIDE. [Suspect]
     Active Substance: FLUOXETINE HYDROCHLORIDE
     Dosage: 1 DF
     Route: 064
  2. ALPRAZOLAM. [Suspect]
     Active Substance: ALPRAZOLAM
     Dosage: 1 DF
     Route: 064
  3. TRAMADOL. [Suspect]
     Active Substance: TRAMADOL
     Dosage: 1 DF
     Route: 064

REACTIONS (6)
  - Developmental delay [Not Recovered/Not Resolved]
  - Syncope [Not Recovered/Not Resolved]
  - Maternal exposure during pregnancy [Unknown]
  - Congenital urethral anomaly [Unknown]
  - Electroencephalogram abnormal [Unknown]
  - Petit mal epilepsy [Not Recovered/Not Resolved]

NARRATIVE: CASE EVENT DATE: 2008
